FAERS Safety Report 8274058-6 (Version None)
Quarter: 2012Q2

REPORT INFORMATION
  Report Type: 
  Country: None (occurrence: None)
  Receive Date: 20120406
  Receipt Date: 20120406
  Transmission Date: 20120825
  Serious: Yes (Life-Threatening, Hospitalization)
  Sender: FDA-Public Use
  Company Number: None

PATIENT
  Sex: Female
  Weight: 58.9676 kg

DRUGS (1)
  1. PHENYTOIN [Suspect]
     Indication: CONVULSION
     Dosage: 300MG ER ONCE PO 2100
     Route: 048
     Dates: start: 20110302

REACTIONS (2)
  - PRODUCT FORMULATION ISSUE [None]
  - GRAND MAL CONVULSION [None]
